FAERS Safety Report 14459689 (Version 1)
Quarter: 2018Q1

REPORT INFORMATION
  Report Type: Spontaneous
  Country: US (occurrence: US)
  Receive Date: 20180129
  Receipt Date: 20180129
  Transmission Date: 20180509
  Serious: Yes (Other)
  Sender: FDA-Public Use
  Company Number: None

PATIENT
  Age: 33 Year
  Sex: Female
  Weight: 58.5 kg

DRUGS (1)
  1. SKYLA [Suspect]
     Active Substance: LEVONORGESTREL
     Indication: CONTRACEPTION
     Dosage: OTHER FREQUENCY:GOOD FOR 3 YEARS;?
     Route: 067
     Dates: start: 20171009, end: 20180129

REACTIONS (1)
  - Coccydynia [None]

NARRATIVE: CASE EVENT DATE: 20171211
